FAERS Safety Report 15674541 (Version 1)
Quarter: 2018Q4

REPORT INFORMATION
  Report Type: Spontaneous
  Country: UM (occurrence: UM)
  Receive Date: 20181128
  Receipt Date: 20181128
  Transmission Date: 20190205
  Serious: Yes (Hospitalization, Disabling)
  Sender: FDA-Public Use
  Company Number: None

PATIENT
  Age: 47 Year
  Sex: Male

DRUGS (1)
  1. AIMOVIG [Suspect]
     Active Substance: ERENUMAB-AOOE
     Indication: MIGRAINE PROPHYLAXIS
     Dosage: ?          OTHER FREQUENCY:ONCE A MONTH;OTHER ROUTE:SELF INJECTION INTO MUSCLE?
     Dates: start: 20180604, end: 20181102

REACTIONS (16)
  - Hypoaesthesia [None]
  - Mood altered [None]
  - Dizziness [None]
  - Insomnia [None]
  - Feeling abnormal [None]
  - Vision blurred [None]
  - Abdominal pain upper [None]
  - Blood sodium decreased [None]
  - Weight decreased [None]
  - Heart rate decreased [None]
  - Hypotension [None]
  - Anxiety [None]
  - Dyspnoea [None]
  - Apathy [None]
  - Migraine [None]
  - Product dose omission [None]

NARRATIVE: CASE EVENT DATE: 20180604
